FAERS Safety Report 18449913 (Version 1)
Quarter: 2020Q4

REPORT INFORMATION
  Report Type: Other
  Country: TH (occurrence: TH)
  Receive Date: 20201030
  Receipt Date: 20201030
  Transmission Date: 20210114
  Serious: Yes (Life-Threatening, Hospitalization)
  Sender: FDA-Public Use
  Company Number: TH-NOSTRUM LABORATORIES, INC.-2093461

PATIENT
  Age: 43 Year
  Sex: Female

DRUGS (4)
  1. GLIPIZIDE. [Concomitant]
     Active Substance: GLIPIZIDE
     Route: 048
  2. SIMVASTATIN. [Concomitant]
     Active Substance: SIMVASTATIN
     Route: 048
  3. LOSARTAN. [Concomitant]
     Active Substance: LOSARTAN
     Route: 048
  4. DAPSONE. [Suspect]
     Active Substance: DAPSONE
     Indication: EOSINOPHILIC CELLULITIS
     Route: 048

REACTIONS (2)
  - Haemolytic anaemia [Unknown]
  - Drug reaction with eosinophilia and systemic symptoms [Unknown]
